FAERS Safety Report 10704860 (Version 1)
Quarter: 2015Q1

REPORT INFORMATION
  Report Type: Spontaneous
  Country: US (occurrence: US)
  Receive Date: 20150112
  Receipt Date: 20150112
  Transmission Date: 20150721
  Serious: Yes (Hospitalization)
  Sender: FDA-Public Use
  Company Number: US-GILEAD-2015-0130883

PATIENT
  Age: 78 Year
  Sex: Male

DRUGS (17)
  1. PANTOPRAZOLE [Concomitant]
     Active Substance: PANTOPRAZOLE SODIUM
  2. LETAIRIS [Suspect]
     Active Substance: AMBRISENTAN
     Indication: PULMONARY ARTERIAL HYPERTENSION
     Dosage: 10 MG, QD
     Route: 065
     Dates: start: 20141001
  3. ATORVASTATIN [Concomitant]
     Active Substance: ATORVASTATIN
  4. CALCIUM [Concomitant]
     Active Substance: CALCIUM
  5. PROSCAR [Concomitant]
     Active Substance: FINASTERIDE
  6. CIPRO                              /00697201/ [Concomitant]
     Active Substance: CIPROFLOXACIN
  7. BABY ASPIRIN [Concomitant]
     Active Substance: ASPIRIN
  8. XARELTO [Concomitant]
     Active Substance: RIVAROXABAN
  9. CARDIAZEM                          /00489701/ [Concomitant]
     Dosage: UNK
  10. LEVOTHYROXINE [Concomitant]
     Active Substance: LEVOTHYROXINE
  11. FENOFIBRATE. [Concomitant]
     Active Substance: FENOFIBRATE
  12. ALLOPURINOL. [Concomitant]
     Active Substance: ALLOPURINOL
  13. ADCIRCA [Concomitant]
     Active Substance: TADALAFIL
  14. FUROSEMIDE. [Concomitant]
     Active Substance: FUROSEMIDE
  15. VITAMIN D                          /00107901/ [Concomitant]
     Active Substance: ERGOCALCIFEROL
  16. TAMSULIN [Concomitant]
  17. URSODIOL. [Concomitant]
     Active Substance: URSODIOL

REACTIONS (2)
  - Dyspnoea [Not Recovered/Not Resolved]
  - Blood count abnormal [Not Recovered/Not Resolved]

NARRATIVE: CASE EVENT DATE: 20150106
